FAERS Safety Report 24219005 (Version 1)
Quarter: 2024Q3

REPORT INFORMATION
  Report Type: Spontaneous
  Country: JO (occurrence: JO)
  Receive Date: 20240816
  Receipt Date: 20240816
  Transmission Date: 20241017
  Serious: Yes (Other)
  Sender: NOVARTIS
  Company Number: JO-002147023-NVSC2024JO165168

PATIENT
  Age: 58 Year
  Sex: Female

DRUGS (5)
  1. LETROZOLE [Suspect]
     Active Substance: LETROZOLE
     Indication: Breast cancer stage IV
     Dosage: 2.5 MG, QD
     Route: 048
  2. ZOMETA [Suspect]
     Active Substance: ZOLEDRONIC ACID
     Indication: Breast cancer stage IV
     Dosage: 4 MG, Q4W
     Route: 042
  3. TAMOXIFEN [Concomitant]
     Active Substance: TAMOXIFEN
     Indication: Breast cancer stage IV
     Dosage: 20 MG, QD
     Route: 048
  4. FULVESTRANT [Concomitant]
     Active Substance: FULVESTRANT
     Indication: Breast cancer stage IV
     Dosage: 500 MG, 28D
     Route: 030
  5. PALBOCICLIB [Concomitant]
     Active Substance: PALBOCICLIB
     Indication: Breast cancer stage IV
     Dosage: 21?DAYS ON MEDICATION FOLLOWED BY 7?DAYS OFF
     Route: 065

REACTIONS (4)
  - Breast cancer stage IV [Recovering/Resolving]
  - Malignant neoplasm progression [Recovering/Resolving]
  - Osteonecrosis of jaw [Unknown]
  - Therapy partial responder [Unknown]
